FAERS Safety Report 12463388 (Version 1)
Quarter: 2016Q2

REPORT INFORMATION
  Report Type: Spontaneous
  Country: IT (occurrence: IT)
  Receive Date: 20160614
  Receipt Date: 20160614
  Transmission Date: 20160815
  Serious: Yes (Hospitalization)
  Sender: FDA-Public Use
  Company Number: IT-AUROBINDO-AUR-APL-2016-07479

PATIENT
  Age: 45 Year
  Sex: Female

DRUGS (2)
  1. GABAPENTIN. [Suspect]
     Active Substance: GABAPENTIN
     Indication: PRODUCT USED FOR UNKNOWN INDICATION
     Route: 048
  2. LITHIUM. [Suspect]
     Active Substance: LITHIUM
     Indication: DEPRESSION
     Route: 048

REACTIONS (3)
  - Drug abuse [Recovering/Resolving]
  - Self injurious behaviour [Recovering/Resolving]
  - Toxicity to various agents [Recovering/Resolving]

NARRATIVE: CASE EVENT DATE: 20160309
